FAERS Safety Report 17057036 (Version 1)
Quarter: 2019Q4

REPORT INFORMATION
  Report Type: Report from Study
  Country: CL (occurrence: CL)
  Receive Date: 20191121
  Receipt Date: 20191121
  Transmission Date: 20200122
  Serious: Yes (Other)
  Sender: FDA-Public Use
  Company Number: CL-EMD SERONO-9129825

PATIENT
  Sex: Female

DRUGS (1)
  1. REBIF [Suspect]
     Active Substance: INTERFERON BETA-1A
     Indication: MULTIPLE SCLEROSIS
     Route: 058
     Dates: start: 20140916

REACTIONS (4)
  - Hyperaesthesia [Recovering/Resolving]
  - Abdominal discomfort [Recovering/Resolving]
  - Lipodystrophy acquired [Recovering/Resolving]
  - Abdominal pain [Recovering/Resolving]
